FAERS Safety Report 7936868-1 (Version None)
Quarter: 2011Q4

REPORT INFORMATION
  Report Type: 
  Country: None (occurrence: None)
  Receive Date: 20111123
  Receipt Date: 20111123
  Transmission Date: 20120403
  Serious: Yes (Death)
  Sender: FDA-Public Use
  Company Number: None

PATIENT
  Sex: Female
  Weight: 94.347 kg

DRUGS (27)
  1. MYLANTA [Concomitant]
  2. IPRATROPIUM BROMIDE [Concomitant]
  3. INSULIN [Concomitant]
  4. APAP TAB [Concomitant]
  5. HALOPERIDOL [Concomitant]
  6. MAGNESIUM SULFATE [Concomitant]
  7. GLIPIZIDE [Concomitant]
  8. METHYLPREDNISOLONE [Concomitant]
  9. NITROFURANTOIN [Concomitant]
  10. FLUMAZENIL [Concomitant]
  11. PRADAXA [Suspect]
     Indication: EMBOLIC STROKE
     Dosage: 150MG
     Route: 048
     Dates: start: 20101229, end: 20110122
  12. PRADAXA [Suspect]
     Indication: ATRIAL FIBRILLATION
     Dosage: 150MG
     Route: 048
     Dates: start: 20101229, end: 20110122
  13. DOCUSATE [Concomitant]
  14. PHENYTOIN [Concomitant]
  15. LEVOTHRYROXINE [Concomitant]
  16. LISINOPRIL [Concomitant]
  17. METOPROLOL TARTRATE [Concomitant]
  18. LABETALOL HCL [Concomitant]
  19. HYRDRALAZINE [Concomitant]
  20. LOVASTATIN [Concomitant]
  21. NALOXONE [Concomitant]
  22. FAMOTIDINE [Concomitant]
  23. LORAZEPAM [Concomitant]
  24. BISACODYL [Concomitant]
  25. ARIPIPRAZOLE [Concomitant]
  26. CLONAZEPAM [Concomitant]
  27. ALBUTEROL [Concomitant]

REACTIONS (7)
  - DECEREBRATION [None]
  - DEPRESSED LEVEL OF CONSCIOUSNESS [None]
  - TACHYPNOEA [None]
  - HYPOTENSION [None]
  - TONGUE BITING [None]
  - HAEMORRHAGIC STROKE [None]
  - NERVOUS SYSTEM DISORDER [None]
